FAERS Safety Report 6704722-9 (Version None)
Quarter: 2010Q2

REPORT INFORMATION
  Report Type: 
  Country: None (occurrence: None)
  Receive Date: 20100430
  Receipt Date: 20100423
  Transmission Date: 20101027
  Serious: Yes (Other)
  Sender: FDA-Public Use
  Company Number: US-ABBOTT-10P-163-0640793-00

PATIENT
  Sex: Female
  Weight: 77.18 kg

DRUGS (16)
  1. HUMIRA [Suspect]
     Indication: RHEUMATOID ARTHRITIS
     Dates: start: 20040101
  2. HUMIRA [Suspect]
     Indication: RHEUMATOID ARTHRITIS
     Dates: start: 20100223
  3. HUMIRA [Suspect]
     Dates: end: 20100223
  4. HYDROCODONE BITARTRATE [Concomitant]
     Indication: PAIN
     Dosage: 1 PILL EVERY 4-6 HOURS
  5. FOSAMAX [Concomitant]
     Indication: OSTEOPOROSIS
  6. SULFASALAZINE [Concomitant]
     Indication: RHEUMATOID ARTHRITIS
  7. PHENERGAN [Concomitant]
     Indication: NAUSEA
  8. NEXIUM [Concomitant]
     Indication: GASTROOESOPHAGEAL REFLUX DISEASE
  9. LOVASTATIN [Concomitant]
     Indication: BLOOD CHOLESTEROL INCREASED
  10. MELLARIL [Concomitant]
     Indication: DRUG USE FOR UNKNOWN INDICATION
  11. AMBIEN [Concomitant]
     Indication: DRUG USE FOR UNKNOWN INDICATION
  12. CELEXA [Concomitant]
     Indication: DEPRESSION
  13. XANAX [Concomitant]
     Indication: ANXIETY
  14. CORTISONE [Concomitant]
     Indication: RHEUMATOID ARTHRITIS
     Route: 050
  15. FOLIC ACID [Concomitant]
     Indication: VITAMIN SUPPLEMENTATION
  16. VITAMIN B-12 [Concomitant]
     Indication: VITAMIN SUPPLEMENTATION

REACTIONS (5)
  - FATIGUE [None]
  - INTESTINAL MASS [None]
  - INTESTINAL POLYP [None]
  - JOINT SWELLING [None]
  - PAIN [None]
